FAERS Safety Report 7821906-7 (Version None)
Quarter: 2011Q4

REPORT INFORMATION
  Report Type: 
  Country: None (occurrence: None)
  Receive Date: 20111018
  Receipt Date: 20110215
  Transmission Date: 20120403
  Serious: No
  Sender: FDA-Public Use
  Company Number: US-ASTRAZENECA-2011SE08785

PATIENT
  Sex: Female

DRUGS (4)
  1. PROAIR HFA [Concomitant]
  2. SYMBICORT [Suspect]
     Dosage: 160/4.5 MCG BID
     Route: 055
     Dates: start: 20110208
  3. TOPROL-XL [Concomitant]
  4. BLOOD PRESSURE MEDICINES [Concomitant]

REACTIONS (2)
  - PARAESTHESIA ORAL [None]
  - DISCOMFORT [None]
